FAERS Safety Report 18645955 (Version 4)
Quarter: 2021Q3

REPORT INFORMATION
  Report Type: Other
  Country: CA (occurrence: CA)
  Receive Date: 20201221
  Receipt Date: 20210924
  Transmission Date: 20211014
  Serious: Yes (Other)
  Sender: FDA-Public Use
  Company Number: CA-CELLTRION INC.-2020CA033872

PATIENT

DRUGS (14)
  1. PREDNISONE. [Suspect]
     Active Substance: PREDNISONE
     Indication: PULMONARY FIBROSIS
     Dosage: 5 MG
     Route: 048
  2. TYLENOL [Concomitant]
     Active Substance: ACETAMINOPHEN
     Indication: PREMEDICATION
     Dosage: 650 MG
     Route: 048
  3. CELLCEPT [Suspect]
     Active Substance: MYCOPHENOLATE MOFETIL\MYCOPHENOLATE MOFETIL HYDROCHLORIDE
     Indication: COLLAGEN DISORDER
  4. PANTOPRAZOLE [Concomitant]
     Active Substance: PANTOPRAZOLE
  5. ALENDRONATE SODIUM. [Concomitant]
     Active Substance: ALENDRONATE SODIUM
  6. TRASTUZUMAB. [Suspect]
     Active Substance: TRASTUZUMAB
     Indication: PRODUCT USED FOR UNKNOWN INDICATION
  7. METHYLPREDNISOLONE SODIUM SUCCINATE. [Concomitant]
     Active Substance: METHYLPREDNISOLONE SODIUM SUCCINATE
     Indication: PREMEDICATION
     Dosage: 100 MG
     Route: 042
  8. RITUXIMAB. [Suspect]
     Active Substance: RITUXIMAB
     Indication: PULMONARY FIBROSIS
     Dosage: 1000 MILLIGRAM
     Route: 042
  9. PREDNISONE. [Suspect]
     Active Substance: PREDNISONE
     Indication: COLLAGEN DISORDER
     Dosage: UNK
     Route: 048
  10. CALCIUM CARBONATE/ERGOCALCIFEROL [Concomitant]
     Active Substance: CALCIUM CARBONATE\ERGOCALCIFEROL
  11. RITUXIMAB. [Suspect]
     Active Substance: RITUXIMAB
     Indication: COLLAGEN DISORDER
  12. CELLCEPT [Suspect]
     Active Substance: MYCOPHENOLATE MOFETIL\MYCOPHENOLATE MOFETIL HYDROCHLORIDE
     Indication: PULMONARY FIBROSIS
     Dosage: 1.5 MG, 2 EVERY 1 DAYS
     Route: 065
  13. BENADRYL [Concomitant]
     Active Substance: DIPHENHYDRAMINE HYDROCHLORIDE
     Indication: PREMEDICATION
     Dosage: 50 MILLIGRAM
     Route: 048
  14. METHYLPREDNISOLONE. [Concomitant]
     Active Substance: METHYLPREDNISOLONE
     Dosage: 100 MG
     Route: 042

REACTIONS (15)
  - Heart rate increased [Recovered/Resolved]
  - Blood pressure fluctuation [Recovered/Resolved]
  - Body temperature increased [Recovered/Resolved]
  - Dyspnoea [Recovered/Resolved]
  - Oxygen saturation decreased [Recovered/Resolved]
  - Disease progression [Recovered/Resolved]
  - Blood pressure increased [Recovered/Resolved]
  - Bronchitis [Recovered/Resolved]
  - Lung disorder [Recovered/Resolved]
  - Off label use [Recovered/Resolved]
  - Off label use [Unknown]
  - Blood pressure systolic increased [Recovered/Resolved]
  - Infusion related reaction [Recovered/Resolved]
  - Blood pressure systolic abnormal [Recovered/Resolved]
  - Total lung capacity decreased [Recovered/Resolved]
